FAERS Safety Report 12632485 (Version 2)
Quarter: 2016Q3

REPORT INFORMATION
  Report Type: Spontaneous
  Country: US (occurrence: US)
  Receive Date: 20160808
  Receipt Date: 20160808
  Transmission Date: 20161109
  Serious: No
  Sender: FDA-Public Use
  Company Number: US-BEH-2016063023

PATIENT
  Sex: Male
  Weight: 112 kg

DRUGS (32)
  1. NEOMYCIN-BACITRACIN-POLYMYXIN [Concomitant]
  2. LEVAQUIN [Concomitant]
     Active Substance: LEVOFLOXACIN
  3. KETAMINE HYDROCHLORIDE. [Concomitant]
     Active Substance: KETAMINE HYDROCHLORIDE
  4. EPIPEN [Concomitant]
     Active Substance: EPINEPHRINE
  5. XALATAN [Concomitant]
     Active Substance: LATANOPROST
  6. LANTUS [Concomitant]
     Active Substance: INSULIN GLARGINE
  7. FUROSEMIDE. [Concomitant]
     Active Substance: FUROSEMIDE
  8. CICLOPIROX. [Concomitant]
     Active Substance: CICLOPIROX
  9. LUNESTA [Concomitant]
     Active Substance: ESZOPICLONE
  10. DIPHENHYDRAMINE. [Concomitant]
     Active Substance: DIPHENHYDRAMINE
  11. HIZENTRA [Suspect]
     Active Substance: HUMAN IMMUNOGLOBULIN G
     Indication: HYPOGAMMAGLOBULINAEMIA
     Route: 058
  12. SINEMET [Concomitant]
     Active Substance: CARBIDOPA\LEVODOPA
  13. CELEBREX [Concomitant]
     Active Substance: CELECOXIB
  14. MESTINON [Concomitant]
     Active Substance: PYRIDOSTIGMINE BROMIDE
  15. ERTACZO [Concomitant]
     Active Substance: SERTACONAZOLE NITRATE
  16. KLOR-CON [Concomitant]
     Active Substance: POTASSIUM CHLORIDE
  17. HIZENTRA [Suspect]
     Active Substance: HUMAN IMMUNOGLOBULIN G
     Indication: HYPOGAMMAGLOBULINAEMIA
     Route: 058
  18. CLINDAMYCIN [Concomitant]
     Active Substance: CLINDAMYCIN\CLINDAMYCIN PHOSPHATE
  19. PULMICORT TURBUHALER [Concomitant]
     Active Substance: BUDESONIDE
  20. PROPAFENONE. [Concomitant]
     Active Substance: PROPAFENONE
  21. REGLAN [Concomitant]
     Active Substance: METOCLOPRAMIDE HYDROCHLORIDE
  22. ZOCOR [Concomitant]
     Active Substance: SIMVASTATIN
  23. LYRICA [Concomitant]
     Active Substance: PREGABALIN
  24. KETOCONAZOLE. [Concomitant]
     Active Substance: KETOCONAZOLE
  25. FLUDROCORTISONE ACETATE. [Concomitant]
     Active Substance: FLUDROCORTISONE ACETATE
  26. ACETAMINOPHEN. [Concomitant]
     Active Substance: ACETAMINOPHEN
  27. L-M-X [Concomitant]
  28. CYMBALTA [Concomitant]
     Active Substance: DULOXETINE HYDROCHLORIDE
  29. NORCO [Concomitant]
     Active Substance: ACETAMINOPHEN\HYDROCODONE BITARTRATE
  30. MIDODRINE [Concomitant]
     Active Substance: MIDODRINE
  31. BOTOX [Concomitant]
     Active Substance: ONABOTULINUMTOXINA
  32. NEXIUM [Concomitant]
     Active Substance: ESOMEPRAZOLE MAGNESIUM

REACTIONS (1)
  - Somnolence [Unknown]
